FAERS Safety Report 7006540-3 (Version None)
Quarter: 2010Q3

REPORT INFORMATION
  Report Type: 
  Country: None (occurrence: None)
  Receive Date: 20100921
  Receipt Date: 20100921
  Transmission Date: 20110219
  Serious: Yes (Other)
  Sender: FDA-Public Use
  Company Number: None

PATIENT
  Age: 60 Year
  Sex: Female

DRUGS (1)
  1. MAGNEVIST [Suspect]
     Indication: SURGERY
     Dosage: 12 ML IV BOLUS
     Route: 040
     Dates: start: 20100818, end: 20100818

REACTIONS (2)
  - CONTRAST MEDIA REACTION [None]
  - SWELLING [None]
